FAERS Safety Report 9737193 (Version 20)
Quarter: 2018Q2

REPORT INFORMATION
  Report Type: Spontaneous
  Country: CA (occurrence: CA)
  Receive Date: 20131206
  Receipt Date: 20180424
  Transmission Date: 20180711
  Serious: Yes (Other)
  Sender: FDA-Public Use
  Company Number: CA-ROCHE-1311894

PATIENT
  Age: 53 Year
  Sex: Female
  Weight: 80 kg

DRUGS (19)
  1. XOLAIR [Suspect]
     Active Substance: OMALIZUMAB
     Indication: ASTHMA
     Route: 058
     Dates: start: 20130510
  2. XOLAIR [Suspect]
     Active Substance: OMALIZUMAB
     Dosage: UNK
     Route: 058
     Dates: start: 20160531
  3. XOLAIR [Suspect]
     Active Substance: OMALIZUMAB
     Dosage: UNK
     Route: 058
     Dates: start: 20160721
  4. XOLAIR [Suspect]
     Active Substance: OMALIZUMAB
     Route: 058
     Dates: start: 20170622
  5. SEEBRI [Suspect]
     Active Substance: GLYCOPYRRONIUM
     Indication: PRODUCT USED FOR UNKNOWN INDICATION
     Dosage: 1 DF
     Route: 055
     Dates: start: 20150301
  6. XOLAIR [Suspect]
     Active Substance: OMALIZUMAB
     Dosage: UNK
     Route: 058
     Dates: start: 20160331
  7. XOLAIR [Suspect]
     Active Substance: OMALIZUMAB
     Route: 058
     Dates: start: 20180409
  8. XOLAIR [Suspect]
     Active Substance: OMALIZUMAB
     Dosage: UNK
     Route: 058
     Dates: start: 20140206
  9. XOLAIR [Suspect]
     Active Substance: OMALIZUMAB
     Dosage: UNK
     Route: 058
     Dates: start: 20160512
  10. XOLAIR [Suspect]
     Active Substance: OMALIZUMAB
     Dosage: UNK
     Route: 058
     Dates: start: 20131030
  11. XOLAIR [Suspect]
     Active Substance: OMALIZUMAB
     Dosage: UNK
     Route: 058
     Dates: start: 20131127
  12. XOLAIR [Suspect]
     Active Substance: OMALIZUMAB
     Route: 058
     Dates: start: 2016
  13. XOLAIR [Suspect]
     Active Substance: OMALIZUMAB
     Route: 058
     Dates: start: 20180222
  14. SINGULAIR [Concomitant]
     Active Substance: MONTELUKAST SODIUM
     Indication: PRODUCT USED FOR UNKNOWN INDICATION
     Route: 048
  15. XOLAIR [Suspect]
     Active Substance: OMALIZUMAB
     Dosage: UNK
     Route: 058
     Dates: start: 20140807
  16. XOLAIR [Suspect]
     Active Substance: OMALIZUMAB
     Route: 058
     Dates: start: 20180305
  17. ZENHALE [Concomitant]
     Active Substance: FORMOTEROL FUMARATE\MOMETASONE FUROATE
     Indication: PRODUCT USED FOR UNKNOWN INDICATION
     Route: 055
  18. XOLAIR [Suspect]
     Active Substance: OMALIZUMAB
     Dosage: UNK
     Route: 058
     Dates: start: 20160302
  19. XOLAIR [Suspect]
     Active Substance: OMALIZUMAB
     Route: 058
     Dates: start: 20180215

REACTIONS (26)
  - Dizziness [Unknown]
  - Blood pressure systolic increased [Unknown]
  - Headache [Unknown]
  - Wheezing [Recovering/Resolving]
  - Body temperature decreased [Unknown]
  - Lower respiratory tract infection [Unknown]
  - Jaw disorder [Unknown]
  - Stress [Unknown]
  - Insomnia [Unknown]
  - Procedural pain [Not Recovered/Not Resolved]
  - Arthralgia [Unknown]
  - Dyspnoea [Not Recovered/Not Resolved]
  - Hypoaesthesia [Unknown]
  - Cough [Unknown]
  - Cholelithiasis [Unknown]
  - Rales [Unknown]
  - Sinusitis [Recovered/Resolved]
  - Skin reaction [Unknown]
  - Carpal tunnel syndrome [Recovering/Resolving]
  - Chest pain [Unknown]
  - Discomfort [Unknown]
  - Weight decreased [Unknown]
  - Malaise [Recovering/Resolving]
  - Breath sounds abnormal [Unknown]
  - Forced expiratory volume decreased [Unknown]
  - Dysphonia [Unknown]

NARRATIVE: CASE EVENT DATE: 20130802
